FAERS Safety Report 11517785 (Version 1)
Quarter: 2015Q3

REPORT INFORMATION
  Report Type: Spontaneous
  Country: US (occurrence: US)
  Receive Date: 20150917
  Receipt Date: 20150917
  Transmission Date: 20151125
  Serious: Yes (Hospitalization, Other)
  Sender: FDA-Public Use
  Company Number: US-GLAXOSMITHKLINE-US2015GSK050162

PATIENT
  Age: 23 Year
  Sex: Female

DRUGS (1)
  1. ACYCLOVIR. [Suspect]
     Active Substance: ACYCLOVIR
     Indication: GENITAL HERPES
     Dosage: 5.9 G, OVER 14 HOURS
     Route: 042

REACTIONS (12)
  - Culture urine positive [Unknown]
  - Renal failure [Recovering/Resolving]
  - Blood urine present [Unknown]
  - Oliguria [Unknown]
  - Urine output decreased [Unknown]
  - Blood creatinine increased [Recovering/Resolving]
  - Fluid overload [Unknown]
  - Overdose [Unknown]
  - Lethargy [Unknown]
  - Urine leukocyte esterase positive [Unknown]
  - Hypertension [Unknown]
  - Mental status changes [Recovering/Resolving]
